FAERS Safety Report 7972570-8 (Version None)
Quarter: 2011Q4

REPORT INFORMATION
  Report Type: 
  Country: None (occurrence: None)
  Receive Date: 20111213
  Receipt Date: 20111202
  Transmission Date: 20120403
  Serious: Yes (Hospitalization, Other)
  Sender: FDA-Public Use
  Company Number: US-BAYER-2011-023902

PATIENT
  Age: 24 Year
  Sex: Female
  Weight: 77.098 kg

DRUGS (3)
  1. NAPROXEN (ALEVE) [Concomitant]
  2. YAZ [Suspect]
     Dosage: UNK
     Route: 048
     Dates: start: 20081101, end: 20090401
  3. NSAID'S [Concomitant]

REACTIONS (7)
  - GALLBLADDER DISORDER [None]
  - BILE DUCT STONE [None]
  - CHOLECYSTITIS [None]
  - PAIN [None]
  - GENERAL PHYSICAL HEALTH DETERIORATION [None]
  - PANCREATITIS [None]
  - INJURY [None]
